FAERS Safety Report 10259835 (Version 2)
Quarter: 2014Q3

REPORT INFORMATION
  Report Type: Spontaneous
  Country: US (occurrence: US)
  Receive Date: 20140625
  Receipt Date: 20140724
  Transmission Date: 20150326
  Serious: Yes (Hospitalization)
  Sender: FDA-Public Use
  Company Number: US-GLAXOSMITHKLINE-A1077691A

PATIENT
  Age: 77 Year
  Sex: Male

DRUGS (5)
  1. VOTRIENT [Suspect]
     Active Substance: PAZOPANIB HYDROCHLORIDE
     Indication: RENAL CANCER
     Dosage: 200MG FOUR TIMES PER DAY
     Route: 048
     Dates: start: 20140604
  2. DOXYCYCLINE. [Concomitant]
     Active Substance: DOXYCYCLINE
  3. DILTIAZEM [Concomitant]
     Active Substance: DILTIAZEM
  4. WARFARIN [Concomitant]
     Active Substance: WARFARIN
  5. AMBIEN [Concomitant]
     Active Substance: ZOLPIDEM TARTRATE

REACTIONS (8)
  - Dizziness [Unknown]
  - Vomiting [Unknown]
  - Dehydration [Not Recovered/Not Resolved]
  - Fatigue [Not Recovered/Not Resolved]
  - Dyspnoea [Not Recovered/Not Resolved]
  - Musculoskeletal pain [Unknown]
  - Nausea [Not Recovered/Not Resolved]
  - Asthenia [Not Recovered/Not Resolved]

NARRATIVE: CASE EVENT DATE: 201406
